FAERS Safety Report 4945496-1 (Version None)
Quarter: 2006Q1

REPORT INFORMATION
  Report Type: 
  Country: None (occurrence: None)
  Receive Date: 20060316
  Receipt Date: 20060306
  Transmission Date: 20060701
  Serious: Yes (Other)
  Sender: FDA-Public Use
  Company Number: PHBS2006ES03769

PATIENT
  Age: 69 Year
  Sex: Female

DRUGS (1)
  1. GLEEVEC [Suspect]
     Indication: CHRONIC MYELOID LEUKAEMIA
     Dosage: 400 MG/D
     Route: 065
     Dates: start: 20050221

REACTIONS (4)
  - LICHENOID KERATOSIS [None]
  - ORAL MUCOSAL DISORDER [None]
  - PIGMENTATION DISORDER [None]
  - VAGINAL LESION [None]
